FAERS Safety Report 4467744-7 (Version None)
Quarter: 2004Q4

REPORT INFORMATION
  Report Type: 
  Country: None (occurrence: None)
  Receive Date: 20041001
  Receipt Date: 20040920
  Transmission Date: 20050328
  Serious: Yes (Hospitalization)
  Sender: FDA-Public Use
  Company Number: 2004049504

PATIENT
  Age: 67 Year
  Sex: Male

DRUGS (4)
  1. LIPITOR [Suspect]
     Indication: ARTERIOSCLEROSIS
     Dosage: 80 MG (80 MG, 1 IN 1 D), ORAL
     Route: 048
     Dates: start: 20040401, end: 20040624
  2. SIMVASTATIN [Suspect]
     Indication: ILL-DEFINED DISORDER
     Dosage: 80 MG
     Dates: start: 20040101
  3. DIPYRIDAMOLE [Concomitant]
  4. ASPIRIN [Concomitant]

REACTIONS (5)
  - BACK PAIN [None]
  - CARPAL TUNNEL SYNDROME [None]
  - LUMBAR SPINAL STENOSIS [None]
  - MUSCULOSKELETAL STIFFNESS [None]
  - SURGERY [None]
